FAERS Safety Report 13853928 (Version 1)
Quarter: 2017Q3

REPORT INFORMATION
  Report Type: Spontaneous
  Country: CA (occurrence: CA)
  Receive Date: 20170810
  Receipt Date: 20170810
  Transmission Date: 20171127
  Serious: Yes (Other)
  Sender: FDA-Public Use
  Company Number: CA-JNJFOC-20170804150

PATIENT
  Sex: Female

DRUGS (4)
  1. TRAMACET [Suspect]
     Active Substance: ACETAMINOPHEN\TRAMADOL
     Indication: BACK PAIN
     Dosage: 37.5 MG TRAMADOL HYDROCHLORIDE/325 MG ACETAMINOPHEN
     Route: 048
  2. NEXIUM [Concomitant]
     Active Substance: ESOMEPRAZOLE MAGNESIUM
     Route: 048
  3. TRAMACET [Suspect]
     Active Substance: ACETAMINOPHEN\TRAMADOL
     Indication: BACK PAIN
     Route: 048
  4. TRAMACET [Suspect]
     Active Substance: ACETAMINOPHEN\TRAMADOL
     Indication: BACK PAIN
     Route: 048

REACTIONS (9)
  - Diarrhoea [Unknown]
  - Treatment noncompliance [Unknown]
  - Abortion spontaneous [Unknown]
  - Drug dependence [Unknown]
  - Nonspecific reaction [Unknown]
  - Drug prescribing error [Unknown]
  - Exposure during pregnancy [Unknown]
  - Off label use [Unknown]
  - Abdominal pain [Unknown]

NARRATIVE: CASE EVENT DATE: 2007
